FAERS Safety Report 6480405-8 (Version None)
Quarter: 2009Q4

REPORT INFORMATION
  Report Type: 
  Country: None (occurrence: None)
  Receive Date: 20091208
  Receipt Date: 20091125
  Transmission Date: 20100525
  Serious: Yes (Hospitalization)
  Sender: FDA-Public Use
  Company Number: US-JNJFOC-20091200823

PATIENT
  Sex: Male
  Weight: 51.7 kg

DRUGS (19)
  1. LOPERAMIDE [Suspect]
     Indication: DRUG USE FOR UNKNOWN INDICATION
     Route: 065
     Dates: start: 20091006
  2. AXITINIB [Suspect]
     Indication: COLORECTAL CANCER METASTATIC
     Route: 048
     Dates: start: 20080430
  3. CAMPTOSAR [Suspect]
     Indication: COLORECTAL CANCER METASTATIC
     Route: 042
     Dates: start: 20090921
  4. LEUCOVORIN CALCIUM [Suspect]
     Indication: COLORECTAL CANCER METASTATIC
     Route: 042
     Dates: start: 20080430
  5. FLUOROURACIL [Suspect]
     Route: 042
     Dates: start: 20080430
  6. FLUOROURACIL [Suspect]
     Indication: COLORECTAL CANCER METASTATIC
     Route: 042
     Dates: start: 20080430
  7. NEUPOGEN [Suspect]
     Indication: DRUG USE FOR UNKNOWN INDICATION
     Route: 065
  8. LOMOTIL [Suspect]
     Indication: DIARRHOEA
     Route: 048
     Dates: start: 20091102, end: 20091109
  9. NEULASTA [Concomitant]
     Dates: start: 20080703
  10. VICODIN/HYDROCODONE BITARTRATE WITH ACETAMINOPHEN [Concomitant]
     Dates: start: 20091019
  11. OXYBUTYNIN CHLORIDE [Concomitant]
     Dates: start: 20090828
  12. VENTOLIN [Concomitant]
     Dates: start: 20091015
  13. MYCELEX [Concomitant]
     Dates: start: 20091019
  14. ATROPINE [Concomitant]
     Dates: start: 20091019
  15. HYDROCHLOROTHIAZIDE [Concomitant]
     Dates: start: 20090302
  16. MUCOMYST [Concomitant]
     Dates: start: 20081105, end: 20091108
  17. ALOXI [Concomitant]
     Dates: start: 20080430
  18. DEXAMETHASONE TAB [Concomitant]
     Dates: start: 20080430
  19. SYNTHROID [Concomitant]
     Dates: start: 20090427

REACTIONS (6)
  - CONFUSIONAL STATE [None]
  - DEHYDRATION [None]
  - DIARRHOEA [None]
  - TOXIC ENCEPHALOPATHY [None]
  - URINARY TRACT INFECTION [None]
  - WHITE BLOOD CELL COUNT ABNORMAL [None]
